FAERS Safety Report 17364299 (Version 1)
Quarter: 2020Q1

REPORT INFORMATION
  Report Type: Spontaneous
  Country: US (occurrence: US)
  Receive Date: 20200204
  Receipt Date: 20200204
  Transmission Date: 20200409
  Serious: No
  Sender: FDA-Public Use
  Company Number: US-AMGEN-USASP2020016179

PATIENT
  Age: 41 Year
  Sex: Female

DRUGS (1)
  1. NEUPOGEN [Suspect]
     Active Substance: FILGRASTIM
     Indication: ENDOMETRIAL THICKENING
     Dosage: 30 MILLION UNIT (300 MCG/1ML)
     Route: 015

REACTIONS (2)
  - Maternal exposure before pregnancy [Unknown]
  - Off label use [Unknown]
